FAERS Safety Report 7462634-X (Version None)
Quarter: 2011Q2

REPORT INFORMATION
  Report Type: 
  Country: None (occurrence: None)
  Receive Date: 20110506
  Receipt Date: 20110425
  Transmission Date: 20111010
  Serious: Yes (Other)
  Sender: FDA-Public Use
  Company Number: PHHY2011JP35936

PATIENT
  Sex: Male
  Weight: 39 kg

DRUGS (20)
  1. CRESTOR [Concomitant]
     Dosage: 5 MG, UNK
     Route: 048
     Dates: start: 20071108
  2. GLYBURIDE [Concomitant]
     Dosage: 1.25 MG, UNK
     Route: 048
     Dates: start: 20060530, end: 20061220
  3. SITAGLIPTIN PHOSPHATE [Suspect]
     Dosage: 50 MG DAILY
     Route: 048
     Dates: start: 20100116
  4. AMLODIPINE BESYLATE [Concomitant]
     Indication: HYPERTENSION
     Dosage: 5 MG, UNK
     Route: 048
     Dates: start: 20080829
  5. ENALAPRIL MALEATE [Suspect]
     Indication: HYPERTENSION
     Dosage: 2.5 MG DAILY
     Route: 048
     Dates: start: 20091015
  6. FLUITRAN [Concomitant]
     Indication: HYPERTENSION
     Dosage: 2 MG, UNK
     Route: 048
     Dates: start: 20100427
  7. LIPODOWN [Concomitant]
     Dosage: 5 MG, UNK
     Route: 048
     Dates: start: 20070723, end: 20071107
  8. CRESTOR [Concomitant]
     Dosage: 2.5 MG, UNK
     Route: 048
  9. DOMPERIDONE [Concomitant]
     Dosage: 10 MG, UNK
     Route: 048
     Dates: start: 20100511
  10. ALCENOL [Concomitant]
     Indication: HYPERTENSION
     Dosage: 50 MG, UNK
     Route: 048
     Dates: start: 20060530, end: 20081002
  11. NORVASC [Concomitant]
     Indication: HYPERTENSION
     Dosage: 5 MG, UNK
     Route: 048
     Dates: start: 20060530, end: 20080829
  12. ALLOPURINOL [Concomitant]
     Dosage: 100 MG, UNK
     Route: 048
     Dates: start: 20080626
  13. VALSARTAN [Suspect]
     Indication: HYPERTENSION
     Dosage: 40 MG, QD
     Route: 048
     Dates: start: 20080626, end: 20091015
  14. VALSARTAN [Suspect]
     Dosage: 80 MG, QD
     Route: 048
     Dates: start: 20091016
  15. DICHLOTRIDE [Concomitant]
     Indication: HYPERTENSION
     Dosage: 25 MG, UNK
     Route: 048
     Dates: start: 20070420, end: 20100427
  16. CLARUTE [Concomitant]
     Indication: HYPERTENSION
     Dosage: 100 MG, UNK
     Route: 048
     Dates: start: 20081002, end: 20091015
  17. URINORM [Concomitant]
     Dosage: 50 MG, UNK
     Route: 048
     Dates: start: 20071109, end: 20080624
  18. AMARYL [Concomitant]
     Dosage: 3 MG, UNK
     Route: 048
     Dates: start: 20061221, end: 20100327
  19. LASIX [Concomitant]
     Dosage: 20 MG, UNK
     Route: 048
     Dates: start: 20090707
  20. VOGLIBOSE [Concomitant]
     Dosage: 0.2 MG, UNK
     Route: 048
     Dates: start: 20080626

REACTIONS (4)
  - RENAL FAILURE CHRONIC [None]
  - DIABETIC NEPHROPATHY [None]
  - BLOOD CREATININE INCREASED [None]
  - BLOOD PRESSURE DIASTOLIC DECREASED [None]
